FAERS Safety Report 5632444-4 (Version None)
Quarter: 2008Q1

REPORT INFORMATION
  Report Type: 
  Country: None (occurrence: None)
  Receive Date: 20080220
  Receipt Date: 20080131
  Transmission Date: 20080703
  Serious: No
  Sender: FDA-Public Use
  Company Number: US-BOEHRINGER INGELHEIM GMBH, GERMANY-2008-BP-01581BP

PATIENT
  Age: 99 Year
  Sex: Male

DRUGS (2)
  1. FLOMAX [Suspect]
     Indication: BENIGN PROSTATIC HYPERPLASIA
     Route: 048
     Dates: start: 20060101
  2. TYLENOL (CAPLET) [Concomitant]
     Indication: ARTHRITIS

REACTIONS (3)
  - CATARACT [None]
  - MIDDLE INSOMNIA [None]
  - READING DISORDER [None]
